FAERS Safety Report 10612677 (Version 2)
Quarter: 2014Q4

REPORT INFORMATION
  Report Type: Spontaneous
  Country: FR (occurrence: FR)
  Receive Date: 20141127
  Receipt Date: 20141215
  Transmission Date: 20150529
  Serious: Yes (Other)
  Sender: FDA-Public Use
  Company Number: FR-RANBAXY-2014RR-88385

PATIENT
  Age: 14 Year
  Sex: Female

DRUGS (1)
  1. PARACETAMOL [Suspect]
     Active Substance: ACETAMINOPHEN
     Indication: PRODUCT USED FOR UNKNOWN INDICATION
     Dosage: 15 G
     Route: 048

REACTIONS (3)
  - Acute hepatic failure [Recovered/Resolved]
  - Intentional overdose [Recovered/Resolved]
  - Acute kidney injury [Recovered/Resolved]
